FAERS Safety Report 5470261-9 (Version None)
Quarter: 2007Q3

REPORT INFORMATION
  Report Type: 
  Country: None (occurrence: None)
  Receive Date: 20070927
  Receipt Date: 20070917
  Transmission Date: 20080115
  Serious: Yes (Hospitalization)
  Sender: FDA-Public Use
  Company Number: DE-BAYER-200711045BVD

PATIENT
  Age: 55 Year
  Sex: Female
  Weight: 58 kg

DRUGS (1)
  1. NEXAVAR [Suspect]
     Indication: PHAEOCHROMOCYTOMA
     Dosage: AS USED: 400 MG
     Route: 048
     Dates: start: 20070801

REACTIONS (2)
  - ABDOMINAL PAIN [None]
  - COLITIS [None]
